FAERS Safety Report 5366305-5 (Version None)
Quarter: 2007Q2

REPORT INFORMATION
  Report Type: 
  Country: None (occurrence: None)
  Receive Date: 20070619
  Receipt Date: 20070619
  Transmission Date: 20071010
  Serious: Yes (Hospitalization)
  Sender: FDA-Public Use
  Company Number: None

PATIENT
  Sex: Female
  Weight: 107 kg

DRUGS (4)
  1. FLUOROURACIL [Suspect]
     Dosage: 5184 MG
     Dates: end: 20000604
  2. BEVACIZUMAB (RHUMAB VEGF) [Suspect]
     Dosage: 537 MG
     Dates: end: 20070604
  3. LEUCOVORIN CALCIUM [Suspect]
     Dosage: 864 MG
     Dates: end: 20070604
  4. ELOXATIN [Suspect]
     Dosage: 184 MG
     Dates: end: 20070604

REACTIONS (1)
  - PULMONARY EMBOLISM [None]
